FAERS Safety Report 6800745-X (Version None)
Quarter: 2010Q2

REPORT INFORMATION
  Report Type: 
  Country: None (occurrence: None)
  Receive Date: 20100629
  Receipt Date: 20100615
  Transmission Date: 20101027
  Serious: Yes (Other)
  Sender: FDA-Public Use
  Company Number: KP-RANBAXY-2010RR-35178

PATIENT
  Age: 39 Year
  Sex: Female

DRUGS (7)
  1. EPINEPHRINE [Suspect]
     Indication: BODY FAT DISORDER
     Dosage: UNK
     Route: 058
  2. AMINOPHYLLINE [Suspect]
     Indication: BODY FAT DISORDER
     Dosage: UNK
     Route: 058
  3. LIDOCAINE [Suspect]
     Indication: BODY FAT DISORDER
     Dosage: UNK
     Route: 058
  4. FLUOXETINE [Suspect]
     Indication: WEIGHT DECREASED
     Dosage: 10 MG, BID
     Route: 048
  5. EPHEDRINE [Suspect]
     Indication: WEIGHT DECREASED
     Dosage: 10 MG, BID
     Route: 048
  6. CAFFEINE [Suspect]
     Indication: WEIGHT DECREASED
     Dosage: 50 MG, BID
     Route: 048
  7. GREEN TEA [Suspect]
     Indication: WEIGHT DECREASED
     Dosage: 250 MG, BID
     Route: 048

REACTIONS (1)
  - COLITIS ISCHAEMIC [None]
